FAERS Safety Report 10901089 (Version 2)
Quarter: 2015Q1

REPORT INFORMATION
  Report Type: Spontaneous
  Country: US (occurrence: US)
  Receive Date: 20150310
  Receipt Date: 20150330
  Transmission Date: 20150721
  Serious: Yes (Death, Hospitalization, Other)
  Sender: FDA-Public Use
  Company Number: US-AMGEN-USASP2015020162

PATIENT
  Age: 85 Year
  Sex: Female
  Weight: 50.79 kg

DRUGS (13)
  1. ONDANSETRON HCL [Concomitant]
     Active Substance: ONDANSETRON HYDROCHLORIDE
     Dosage: 4 MG, Q8H
  2. ROPINIROLE HCL [Concomitant]
     Active Substance: ROPINIROLE HYDROCHLORIDE
     Dosage: 2 MG, QD, 2 TABLETS AT BED TIME
  3. COUMADIN [Concomitant]
     Active Substance: WARFARIN SODIUM
     Dosage: 2 MG, UNK
     Dates: start: 20140715
  4. AMIODARONE [Concomitant]
     Active Substance: AMIODARONE
  5. PROLIA [Suspect]
     Active Substance: DENOSUMAB
     Indication: OSTEOPOROSIS
     Dosage: 60 MG, Q6MO
     Route: 058
     Dates: start: 20140307, end: 20140715
  6. FENTANYL. [Concomitant]
     Active Substance: FENTANYL
     Dosage: 25 MUG PER HOUR, UNK, CHANGE EVERY 72 HOURS
     Dates: start: 20140926
  7. RANITIDINE HCL [Concomitant]
     Active Substance: RANITIDINE HYDROCHLORIDE
     Dosage: 150 MG, BID, 1 TABLET TWICE DAILY
     Dates: start: 20140829
  8. OMEPRAZOLE. [Concomitant]
     Active Substance: OMEPRAZOLE
     Dosage: 40 MG, BID
     Dates: start: 20140527
  9. MORPHINE SULFATE. [Concomitant]
     Active Substance: MORPHINE SULFATE
     Indication: PAIN
     Dosage: ,20 MG/ML, UNK, ML EVERY TWO HOURS
     Dates: start: 20141006
  10. OXYCODONE HCL [Concomitant]
     Active Substance: OXYCODONE HYDROCHLORIDE
     Dosage: 5 MG, 1-2 TABLETS AS NECESSARY
     Dates: start: 20141003
  11. POLYETHYLENE GLYCOL [Concomitant]
     Active Substance: POLYETHYLENE GLYCOLS
     Dosage: 17 G, BID, AS NEEDED
     Dates: start: 20140325
  12. ATIVAN [Concomitant]
     Active Substance: LORAZEPAM
     Dosage: 0.5 MG, Q4H AS NEEDED
     Dates: start: 20141003
  13. SYNTHROID [Concomitant]
     Active Substance: LEVOTHYROXINE SODIUM
     Dosage: 137 MUG, QD
     Dates: start: 20140527

REACTIONS (50)
  - Herpes zoster [Unknown]
  - Osteonecrosis [Unknown]
  - Vertigo positional [Unknown]
  - Lymphoedema [Unknown]
  - Lumbar spinal stenosis [Unknown]
  - Oedema [Unknown]
  - Hypothyroidism [Unknown]
  - Faeces discoloured [Unknown]
  - Medical device complication [Unknown]
  - Gait disturbance [Unknown]
  - Haematuria [Unknown]
  - Ligament sprain [Unknown]
  - Constipation [Unknown]
  - Erythema [Recovered/Resolved]
  - Atrial fibrillation [Unknown]
  - Cellulitis [Unknown]
  - Restless legs syndrome [Unknown]
  - Carpal tunnel syndrome [Unknown]
  - Denture wearer [Unknown]
  - Insomnia [Unknown]
  - Back pain [Unknown]
  - Macrocytosis [Unknown]
  - Hyperlipidaemia [Unknown]
  - Sleep apnoea syndrome [Unknown]
  - Morton^s neuralgia [Unknown]
  - Stasis dermatitis [Unknown]
  - Oral pain [Recovering/Resolving]
  - Osteoarthritis [Unknown]
  - Arthralgia [Unknown]
  - Musculoskeletal pain [Unknown]
  - Stress fracture [Unknown]
  - Tachycardia paroxysmal [Unknown]
  - Muscular weakness [Unknown]
  - Asthma [Unknown]
  - Age-related macular degeneration [Unknown]
  - Dupuytren^s contracture [Unknown]
  - Anaemia of chronic disease [Unknown]
  - Diabetic neuropathy [Unknown]
  - Dry eye [Unknown]
  - Rhinitis allergic [Unknown]
  - Cheilitis [Unknown]
  - Gastrooesophageal reflux disease [Unknown]
  - Type 2 diabetes mellitus [Unknown]
  - Arteriovenous graft [Unknown]
  - Chronic kidney disease [Fatal]
  - Laceration [Unknown]
  - Essential hypertension [Unknown]
  - Hypotension [Unknown]
  - Gout [Unknown]
  - Epistaxis [Unknown]

NARRATIVE: CASE EVENT DATE: 20140314
